FAERS Safety Report 6191463-2 (Version None)
Quarter: 2009Q2

REPORT INFORMATION
  Report Type: 
  Country: None (occurrence: None)
  Receive Date: 20090515
  Receipt Date: 20090512
  Transmission Date: 20091009
  Serious: Yes (Other)
  Sender: FDA-Public Use
  Company Number: AU-ASTRAZENECA-2009AP02788

PATIENT
  Age: 64 Year
  Sex: Female
  Weight: 62 kg

DRUGS (3)
  1. CRESTOR [Suspect]
     Route: 048
  2. ATACAND [Concomitant]
     Indication: HYPOTENSION
     Route: 048
     Dates: start: 20070503
  3. SOMAC [Concomitant]
     Indication: GASTROOESOPHAGEAL REFLUX DISEASE
     Route: 048
     Dates: start: 20081128

REACTIONS (3)
  - BACK PAIN [None]
  - CHROMATURIA [None]
  - RHABDOMYOLYSIS [None]
